FAERS Safety Report 5186372-1 (Version None)
Quarter: 2006Q4

REPORT INFORMATION
  Report Type: 
  Country: None (occurrence: None)
  Receive Date: 20061220
  Receipt Date: 20061208
  Transmission Date: 20070319
  Serious: Yes (Hospitalization)
  Sender: FDA-Public Use
  Company Number: DE-ELI_LILLY_AND_COMPANY-DE200612001403

PATIENT
  Age: 65 Year
  Sex: Female

DRUGS (3)
  1. CYMBALTA [Suspect]
     Indication: DEPRESSION
     Dosage: 30 MG, DAILY (1/D)
     Route: 048
     Dates: start: 20050101, end: 20060101
  2. ALLOPURINOL [Concomitant]
     Dosage: 300 MG, UNK
  3. ACETYLSALICYLIC ACID SRT [Concomitant]
     Dosage: 100 MG, UNK
     Route: 048

REACTIONS (2)
  - CEREBRAL HAEMORRHAGE [None]
  - HEADACHE [None]
